FAERS Safety Report 5814522-X (Version None)
Quarter: 2008Q3

REPORT INFORMATION
  Report Type: 
  Country: None (occurrence: None)
  Receive Date: 20080718
  Receipt Date: 20070530
  Transmission Date: 20090109
  Serious: No
  Sender: FDA-Public Use
  Company Number: US-KINGPHARMUSA00001-K200700662

PATIENT

DRUGS (9)
  1. LEVOXYL [Suspect]
     Indication: THYROID DISORDER
     Dosage: 50 MCG, UNK
     Route: 048
     Dates: start: 20070501, end: 20070501
  2. LEVOXYL [Suspect]
     Indication: ALOPECIA
  3. MULTIVITAMIN CALCIMATE PLUS [Concomitant]
     Dosage: 2 IN AM, 2 IN PM
  4. TOPROL-XL [Concomitant]
     Indication: CARDIAC DISORDER
     Dosage: 100 MG, UNK
  5. TOPROL-XL [Concomitant]
     Indication: BLOOD PRESSURE
  6. EFFEXOR [Concomitant]
     Dosage: 150 MG, UNK
  7. HYDROXCHLOROGUIM [Concomitant]
     Indication: SYSTEMIC LUPUS ERYTHEMATOSUS
  8. ALPRAZOLAM [Concomitant]
     Indication: TENSION
     Dosage: .5 UNK, QHS
  9. XOPENEX NEBULIZER [Concomitant]
     Indication: LUNG DISORDER

REACTIONS (3)
  - PRURITUS [None]
  - RASH [None]
  - SKIN REACTION [None]
